FAERS Safety Report 6584688-5 (Version None)
Quarter: 2010Q1

REPORT INFORMATION
  Report Type: 
  Country: None (occurrence: None)
  Receive Date: 20100217
  Receipt Date: 20100204
  Transmission Date: 20100710
  Serious: Yes (Hospitalization, Other)
  Sender: FDA-Public Use
  Company Number: PHHY2010CA07109

PATIENT
  Sex: Female

DRUGS (2)
  1. ACLASTA [Suspect]
     Indication: OSTEOPOROSIS
     Dosage: 5 MG, UNK
     Route: 042
  2. PREDNISONE [Concomitant]

REACTIONS (4)
  - FACIAL OPERATION [None]
  - ORAL NEOPLASM [None]
  - SPINAL FRACTURE [None]
  - SPINAL OPERATION [None]
